FAERS Safety Report 6732232-1 (Version None)
Quarter: 2010Q2

REPORT INFORMATION
  Report Type: 
  Country: None (occurrence: None)
  Receive Date: 20100519
  Receipt Date: 20100510
  Transmission Date: 20101027
  Serious: Yes (Hospitalization)
  Sender: FDA-Public Use
  Company Number: A0858686A

PATIENT
  Age: 62 Year
  Sex: Male
  Weight: 88.2 kg

DRUGS (6)
  1. AVANDIA [Suspect]
     Dosage: 8MG PER DAY
     Route: 048
     Dates: start: 20040127, end: 20050101
  2. AMARYL [Concomitant]
  3. METFORMIN HYDROCHLORIDE [Concomitant]
  4. PEPCID [Concomitant]
  5. LOVASTATIN [Concomitant]
  6. NEXIUM [Concomitant]

REACTIONS (4)
  - CORONARY ARTERY DISEASE [None]
  - FIBULA FRACTURE [None]
  - MITRAL VALVE INCOMPETENCE [None]
  - MYOCARDIAL INFARCTION [None]
